FAERS Safety Report 23153153 (Version 1)
Quarter: 2023Q4

REPORT INFORMATION
  Report Type: Spontaneous
  Country: TR (occurrence: TR)
  Receive Date: 20231107
  Receipt Date: 20231107
  Transmission Date: 20240110
  Serious: Yes (Other)
  Sender: FDA-Public Use
  Company Number: TR-SANDOZ-SDZ2023TR050172

PATIENT
  Age: 41 Year
  Sex: Female

DRUGS (2)
  1. METHOTREXATE [Suspect]
     Active Substance: METHOTREXATE
     Indication: Morphoea
     Dosage: 15 MG/ML PER WEEK
     Route: 058
  2. TACROLIMUS [Concomitant]
     Active Substance: TACROLIMUS
     Indication: Morphoea
     Dosage: 0.1%
     Route: 061

REACTIONS (3)
  - Idiopathic intracranial hypertension [Recovering/Resolving]
  - Gastrointestinal disorder [Unknown]
  - Product use in unapproved indication [Unknown]
